FAERS Safety Report 8135358-3 (Version None)
Quarter: 2012Q1

REPORT INFORMATION
  Report Type: 
  Country: None (occurrence: None)
  Receive Date: 20120214
  Receipt Date: 20120210
  Transmission Date: 20120608
  Serious: Yes (Hospitalization)
  Sender: FDA-Public Use
  Company Number: US-VERTEX PHARMACEUTICALS INC.-AE-2012-001996

PATIENT
  Sex: Female

DRUGS (3)
  1. INCIVEK [Suspect]
     Indication: HEPATITIS C
     Route: 048
     Dates: start: 20120124, end: 20120207
  2. PEGASYS [Concomitant]
     Indication: HEPATITIS C
     Dates: start: 20120124, end: 20120207
  3. RIBAVIRIN [Concomitant]
     Indication: HEPATITIS C
     Dates: start: 20120124, end: 20120207

REACTIONS (5)
  - DYSPNOEA [None]
  - RASH [None]
  - CHEST PAIN [None]
  - HEART RATE INCREASED [None]
  - CHEST DISCOMFORT [None]
